FAERS Safety Report 15665518 (Version 1)
Quarter: 2018Q4

REPORT INFORMATION
  Report Type: Spontaneous
  Country: NL (occurrence: NL)
  Receive Date: 20181128
  Receipt Date: 20181128
  Transmission Date: 20190205
  Serious: Yes (Other)
  Sender: FDA-Public Use
  Company Number: NL-LPDUSPRD-20182258

PATIENT
  Age: 38 Year
  Sex: Female
  Weight: 55 kg

DRUGS (2)
  1. FERINJECT [Suspect]
     Active Substance: FERRIC CARBOXYMALTOSE
     Dosage: UNKNOWN
     Route: 065
     Dates: start: 20180914
  2. ETHINYLESTRADIOL W/ LEVONORGESTREL [Concomitant]
     Dosage: 30MCG/150 MCG
     Route: 048

REACTIONS (1)
  - Pericarditis [Unknown]

NARRATIVE: CASE EVENT DATE: 20180916
